FAERS Safety Report 4516174-8 (Version None)
Quarter: 2004Q4

REPORT INFORMATION
  Report Type: 
  Country: None (occurrence: None)
  Receive Date: 20041129
  Receipt Date: 20041112
  Transmission Date: 20050328
  Serious: Yes (Hospitalization)
  Sender: FDA-Public Use
  Company Number: ATO-04-0927

PATIENT
  Sex: Male
  Weight: 95.2554 kg

DRUGS (1)
  1. TRISENOX [Suspect]
     Indication: ACUTE PROMYELOCYTIC LEUKAEMIA
     Dosage: 14 MG, 50 DOSES, IVI
     Route: 042
     Dates: start: 20030101

REACTIONS (4)
  - ELECTROCARDIOGRAM QT PROLONGED [None]
  - INFUSION SITE ERYTHEMA [None]
  - INFUSION SITE REACTION [None]
  - INFUSION SITE SWELLING [None]
